FAERS Safety Report 24136191 (Version 2)
Quarter: 2024Q3

REPORT INFORMATION
  Report Type: Spontaneous
  Country: US (occurrence: US)
  Receive Date: 20240725
  Receipt Date: 20240906
  Transmission Date: 20241016
  Serious: No
  Sender: GLAXOSMITHKLINE
  Company Number: US-GSK-US2024AMR092127

PATIENT
  Sex: Female

DRUGS (1)
  1. FLUTICASONE PROPIONATE [Suspect]
     Active Substance: FLUTICASONE PROPIONATE
     Indication: Product used for unknown indication
     Dosage: UNK,110 MCG, 12G/120 METERED

REACTIONS (2)
  - Drug ineffective [Unknown]
  - Product complaint [Unknown]
